FAERS Safety Report 4519459-4 (Version None)
Quarter: 2004Q4

REPORT INFORMATION
  Report Type: 
  Country: None (occurrence: None)
  Receive Date: 20041101
  Receipt Date: 20040421
  Transmission Date: 20050328
  Serious: Yes (Death)
  Sender: FDA-Public Use
  Company Number: KDL073447

PATIENT
  Age: 49 Year
  Sex: Female

DRUGS (1)
  1. PROCRIT [Suspect]
     Indication: ANAEMIA OF MALIGNANT DISEASE
     Dosage: 40000 IU, 1 IN 1 WEEKS, SC
     Route: 058
     Dates: start: 20021023

REACTIONS (2)
  - MALIGNANT NEOPLASM PROGRESSION [None]
  - MEDICATION TAMPERING [None]
